FAERS Safety Report 9306497 (Version 1)
Quarter: 2013Q2

REPORT INFORMATION
  Report Type: Spontaneous
  Country: US (occurrence: None)
  Receive Date: 20130506
  Receipt Date: 20130506
  Transmission Date: 20140414
  Serious: Yes (Other)
  Sender: FDA-Public Use
  Company Number: 2013035656

PATIENT
  Age: 57 Year
  Sex: Female
  Weight: 92.99 kg

DRUGS (3)
  1. HIZENTRA (IMMUNOGLOBULIN HUMAN NORMAL) [Suspect]
     Indication: IMMUNODEFICIENCY COMMON VARIABLE
     Dosage: (IN 3-5 SITES OVER 1.5 TO 2 HOURS)
     Route: 058
     Dates: start: 20130118, end: 20130418
  2. DIPHENHYDRAMINE (DIPHENHYDRAMINE) [Concomitant]
  3. L-M-X (LIDOCAINE) [Concomitant]
     Indication: IMMUNODEFICIENCY COMMON VARIABLE

REACTIONS (10)
  - Respiratory distress [None]
  - Urticaria [None]
  - Cough [None]
  - Wheezing [None]
  - Dyspnoea [None]
  - Pruritus generalised [None]
  - Rash [None]
  - Swelling [None]
  - Infusion site inflammation [None]
  - Infusion site erythema [None]
